FAERS Safety Report 10012889 (Version 1)
Quarter: 2014Q1

REPORT INFORMATION
  Report Type: Spontaneous
  Country: NL (occurrence: NL)
  Receive Date: 20140314
  Receipt Date: 20140314
  Transmission Date: 20141002
  Serious: Yes (Disabling, Other)
  Sender: FDA-Public Use
  Company Number: NL-BRISTOL-MYERS SQUIBB COMPANY-20370987

PATIENT
  Age: 59 Year
  Sex: Female

DRUGS (15)
  1. ORENCIA [Suspect]
     Route: 042
     Dates: start: 20120801, end: 20131227
  2. PREDNISOLONE [Concomitant]
     Dosage: LAST  05JUN2013,ONGIONG TILL 05FEB2014
  3. RISEDRONIC ACID [Concomitant]
  4. RISEDRONIC ACID [Concomitant]
     Dosage: TABS?LAST PRESCRIPTION 13NOV2013
  5. CLOPIDOGREL BISULFATE [Concomitant]
     Dosage: TABS?LAST PRESCRIPTION 12-DEC-2013
  6. DEXTRAN 40 + HYPROMELLOSE [Concomitant]
     Dosage: LAST PRESCRIPTION 17JAN2014
  7. ACETYLSALICYLIC ACID [Concomitant]
     Dosage: TABS?LAST PRESCRIPTION 05FEB2014
  8. THYRAX [Concomitant]
     Dosage: TABS?LAST PRESCRIPTION 05-FEB-2014
  9. SIMVASTATIN [Concomitant]
     Dosage: TABS?LAST PRESCRIPTION 05FEB2014
  10. METOPROLOL [Concomitant]
     Dosage: LAST PRESCRIPTION 05FE52014
  11. PARACETAMOL TABS [Concomitant]
     Dosage: LAST PRESCRIPTION 05FEB2014
  12. OMEPRAZOLE [Concomitant]
     Dosage: LAST PRESCRIPTION 05FEB2014?TABS
  13. CALCIFEROL [Concomitant]
     Dosage: TABS?LAST PRESCRIPTION 05FEB14?1DF=800IE
  14. NITROGLYCERINE [Concomitant]
     Dosage: 1DF=.4MG/DOS?LAST PRESCRIPTION 10FEB14
  15. OXAZEPAM [Concomitant]
     Dosage: LAST PRESCRIPTION 10FEB2014
     Dates: end: 2014

REACTIONS (2)
  - Blindness unilateral [Unknown]
  - Ocular retrobulbar haemorrhage [Unknown]
